FAERS Safety Report 9382395 (Version 3)
Quarter: 2014Q1

REPORT INFORMATION
  Report Type: Spontaneous
  Country: US (occurrence: US)
  Receive Date: 20130703
  Receipt Date: 20140110
  Transmission Date: 20141002
  Serious: Yes (Death, Hospitalization)
  Sender: FDA-Public Use
  Company Number: US-B.I. PHARMACEUTICALS,INC./RIDGEFIELD-2013-BI-19167BP

PATIENT
  Sex: Male

DRUGS (13)
  1. PRADAXA [Suspect]
     Indication: ATRIAL FIBRILLATION
     Dosage: 300 MG
     Dates: start: 20120221, end: 20120301
  2. PRADAXA [Suspect]
     Indication: ANTICOAGULANT THERAPY
  3. PROCRIT [Concomitant]
  4. METOPROLOL [Concomitant]
     Dosage: 200 MG
  5. DILTIAZEM [Concomitant]
     Dosage: 180 MG
  6. ACTOS [Concomitant]
  7. ALLOPURINOL [Concomitant]
  8. SIMVASTATIN [Concomitant]
  9. NIASPAN EXTENDED RELEASE [Concomitant]
  10. LASIX [Concomitant]
  11. IRON [Concomitant]
  12. DISCOVERY [Concomitant]
  13. HYDROCHLOROTHIAZIDE [Concomitant]

REACTIONS (10)
  - Lower gastrointestinal haemorrhage [Fatal]
  - Toxicity to various agents [Fatal]
  - Anaemia [Unknown]
  - Coagulopathy [Recovered/Resolved]
  - Renal failure acute [Unknown]
  - Respiratory failure [Unknown]
  - Multi-organ failure [Unknown]
  - Contusion [Unknown]
  - Ecchymosis [Unknown]
  - Thrombocytopenia [Unknown]
